FAERS Safety Report 5182663-9 (Version None)
Quarter: 2006Q4

REPORT INFORMATION
  Report Type: 
  Country: None (occurrence: None)
  Receive Date: 20061212
  Receipt Date: 20061129
  Transmission Date: 20070319
  Serious: Yes (Other)
  Sender: FDA-Public Use
  Company Number: 0104-2950

PATIENT
  Age: 61 Year
  Sex: Female
  Weight: 68.9467 kg

DRUGS (10)
  1. ADVICOR [Suspect]
     Indication: BLOOD CHOLESTEROL INCREASED
     Dosage: 1 TABLET(S) QHS PO
     Route: 048
     Dates: start: 20061001
  2. LANTUS [Concomitant]
  3. REGULAR INSULIN [Concomitant]
  4. CELLCEPT [Concomitant]
  5. NEORAL [Concomitant]
  6. DIOVAN [Concomitant]
  7. SYNTHROID [Concomitant]
  8. VICODIN [Concomitant]
  9. DIAZEPAM [Concomitant]
  10. ASPIRIN [Concomitant]

REACTIONS (2)
  - DIARRHOEA [None]
  - GASTRIC ULCER HAEMORRHAGE [None]
